FAERS Safety Report 9688130 (Version 1)
Quarter: 2013Q4

REPORT INFORMATION
  Report Type: Spontaneous
  Country: US (occurrence: None)
  Receive Date: 20131113
  Receipt Date: 20131113
  Transmission Date: 20140711
  Serious: Yes (Life-Threatening, Hospitalization, Disabling, Other)
  Sender: FDA-Public Use
  Company Number: None

PATIENT
  Age: 46 Year
  Sex: Male

DRUGS (1)
  1. CHANTIX [Suspect]
     Indication: SMOKING CESSATION THERAPY
     Dosage: .5-1DAILY 1WEEK 1.1 DAILY ONCE DAILY TAKEN BY MOUTH
     Route: 048

REACTIONS (4)
  - Myocardial infarction [None]
  - Cerebrovascular accident [None]
  - Suicidal ideation [None]
  - Imprisonment [None]
